FAERS Safety Report 6245902-9 (Version None)
Quarter: 2009Q2

REPORT INFORMATION
  Report Type: 
  Country: None (occurrence: None)
  Receive Date: 20090626
  Receipt Date: 20080616
  Transmission Date: 20091009
  Serious: No
  Sender: FDA-Public Use
  Company Number: A0733412A

PATIENT
  Age: 60 Year
  Sex: Female

DRUGS (1)
  1. IMITREX [Suspect]
     Indication: HEADACHE
     Dosage: 100MG SINGLE DOSE
     Route: 048
     Dates: start: 20080614, end: 20080614

REACTIONS (6)
  - CHEST DISCOMFORT [None]
  - DIZZINESS [None]
  - MUSCULOSKELETAL CHEST PAIN [None]
  - MYALGIA [None]
  - NAUSEA [None]
  - PAIN [None]
